FAERS Safety Report 7201457-3 (Version None)
Quarter: 2010Q4

REPORT INFORMATION
  Report Type: 
  Country: None (occurrence: None)
  Receive Date: 20101227
  Receipt Date: 20101227
  Transmission Date: 20110411
  Serious: Yes (Death)
  Sender: FDA-Public Use
  Company Number: None

PATIENT
  Age: 99 Year
  Sex: Female
  Weight: 52.1637 kg

DRUGS (1)
  1. OPTIRAY 350 [Suspect]
     Indication: INFECTION
     Dates: start: 20101105, end: 20101105

REACTIONS (1)
  - RENAL FAILURE [None]
